FAERS Safety Report 6826451-3 (Version None)
Quarter: 2010Q3

REPORT INFORMATION
  Report Type: 
  Country: None (occurrence: None)
  Receive Date: 20100709
  Receipt Date: 20100705
  Transmission Date: 20110219
  Serious: Yes (Death)
  Sender: FDA-Public Use
  Company Number: NZ-JNJFOC-20100701362

PATIENT
  Age: 52 Year

DRUGS (2)
  1. RISPERDAL CONSTA [Suspect]
     Indication: PRODUCT USED FOR UNKNOWN INDICATION
     Route: 030
  2. RISPERDAL CONSTA [Suspect]
     Route: 030

REACTIONS (3)
  - DIZZINESS [None]
  - ROAD TRAFFIC ACCIDENT [None]
  - TARDIVE DYSKINESIA [None]
